FAERS Safety Report 26214203 (Version 1)
Quarter: 2025Q4

REPORT INFORMATION
  Report Type: Spontaneous
  Country: CN (occurrence: CN)
  Receive Date: 20251230
  Receipt Date: 20251230
  Transmission Date: 20260118
  Serious: Yes (Other)
  Sender: NOVARTIS
  Company Number: CN-002147023-NVSC2025CN197330

PATIENT
  Age: 68 Year
  Sex: Female
  Weight: 75 kg

DRUGS (2)
  1. RIBOCICLIB [Suspect]
     Active Substance: RIBOCICLIB
     Indication: Breast cancer
     Dosage: 400 MG, USAGE PER DAY 1, ONCE A A DAY
     Route: 048
     Dates: start: 20251104, end: 20251206
  2. LETROZOLE [Concomitant]
     Active Substance: LETROZOLE
     Indication: Myelosuppression
     Dosage: 2.500 MG, USAGE PER DAY 1, ONCE ADAY
     Route: 048
     Dates: start: 20251104, end: 20251206

REACTIONS (1)
  - Myelosuppression [Recovering/Resolving]

NARRATIVE: CASE EVENT DATE: 20251212
